FAERS Safety Report 7877516-9 (Version None)
Quarter: 2011Q4

REPORT INFORMATION
  Report Type: 
  Country: None (occurrence: None)
  Receive Date: 20111031
  Receipt Date: 20111025
  Transmission Date: 20120403
  Serious: Yes (Death)
  Sender: FDA-Public Use
  Company Number: US-AMGEN-USASP2011050609

PATIENT
  Age: 45 Year
  Sex: Female

DRUGS (2)
  1. IMMUNE GLOBULIN NOS [Concomitant]
     Indication: IDIOPATHIC THROMBOCYTOPENIC PURPURA
     Dosage: UNK UNK, PRN
     Route: 042
  2. NPLATE [Suspect]
     Indication: IDIOPATHIC THROMBOCYTOPENIC PURPURA
     Dosage: 549 MUG, QWK
     Route: 058
     Dates: start: 20090421, end: 20090714

REACTIONS (1)
  - DEATH [None]
